FAERS Safety Report 6388142-5 (Version None)
Quarter: 2009Q4

REPORT INFORMATION
  Report Type: 
  Country: None (occurrence: None)
  Receive Date: 20091005
  Receipt Date: 20090926
  Transmission Date: 20100525
  Serious: Yes (Hospitalization)
  Sender: FDA-Public Use
  Company Number: BR-AVENTIS-200921113GDDC

PATIENT

DRUGS (3)
  1. LANTUS [Suspect]
  2. AUTOPEN 24 [Suspect]
  3. LANTUS [Suspect]

REACTIONS (1)
  - HOSPITALISATION [None]
